FAERS Safety Report 4296036-4 (Version None)
Quarter: 2004Q1

REPORT INFORMATION
  Report Type: 
  Country: None (occurrence: None)
  Receive Date: 20040212
  Receipt Date: 20040129
  Transmission Date: 20041129
  Serious: No
  Sender: FDA-Public Use
  Company Number: S04-USA-00413-01

PATIENT
  Age: 40 Year
  Sex: Female
  Weight: 81.1939 kg

DRUGS (1)
  1. CELEXA [Suspect]
     Indication: DEPRESSION
     Dosage: 10 MG QD PO
     Route: 048
     Dates: start: 20010101

REACTIONS (4)
  - ARTHRALGIA [None]
  - BREAST CANCER STAGE III [None]
  - NEOPLASM RECURRENCE [None]
  - VAGINAL HAEMORRHAGE [None]
